FAERS Safety Report 6814505 (Version 14)
Quarter: 2014Q1

REPORT INFORMATION
  Report Type: Spontaneous
  Country: US (occurrence: US)
  Receive Date: 20080814
  Receipt Date: 20140129
  Transmission Date: 20141002
  Serious: Yes (Hospitalization)
  Sender: FDA-Public Use
  Company Number: US-BIOGENIDEC-2008BI020136

PATIENT
  Age: 52 Year
  Sex: Male
  Weight: 88 kg

DRUGS (9)
  1. TYSABRI [Suspect]
     Indication: MULTIPLE SCLEROSIS
     Route: 042
     Dates: start: 20080611, end: 20080611
  2. TYSABRI [Suspect]
     Indication: MULTIPLE SCLEROSIS
     Route: 042
     Dates: start: 20100402
  3. COUMADIN [Concomitant]
     Indication: ANTICOAGULANT THERAPY
  4. COUMADIN [Concomitant]
     Indication: ANTICOAGULANT THERAPY
  5. BACLOFEN [Concomitant]
     Indication: PRODUCT USED FOR UNKNOWN INDICATION
  6. FLOMAX [Concomitant]
     Indication: PRODUCT USED FOR UNKNOWN INDICATION
  7. METOPROLOL XL [Concomitant]
     Indication: ATRIAL FIBRILLATION
  8. CLONAZEPAM [Concomitant]
     Indication: PRODUCT USED FOR UNKNOWN INDICATION
  9. FOSAMAX [Concomitant]
     Indication: PRODUCT USED FOR UNKNOWN INDICATION

REACTIONS (15)
  - Fall [Recovered/Resolved]
  - Impacted fracture [Recovered/Resolved]
  - Bacterial sepsis [Recovered/Resolved]
  - Hypoaesthesia [Not Recovered/Not Resolved]
  - Muscle atrophy [Not Recovered/Not Resolved]
  - Hallucination [Recovered/Resolved]
  - Depression [Not Recovered/Not Resolved]
  - Weight decreased [Unknown]
  - Fatigue [Unknown]
  - Tension [Not Recovered/Not Resolved]
  - Muscle twitching [Not Recovered/Not Resolved]
  - Abnormal dreams [Not Recovered/Not Resolved]
  - Pain [Not Recovered/Not Resolved]
  - Decreased immune responsiveness [Not Recovered/Not Resolved]
  - Gait disturbance [Unknown]
